FAERS Safety Report 7044548-2 (Version None)
Quarter: 2010Q4

REPORT INFORMATION
  Report Type: 
  Country: None (occurrence: None)
  Receive Date: 20101013
  Receipt Date: 20101013
  Transmission Date: 20110411
  Serious: Yes (Hospitalization)
  Sender: FDA-Public Use
  Company Number: None

PATIENT
  Age: 55 Year
  Sex: Female
  Weight: 59.1 kg

DRUGS (13)
  1. RAD 001 5MG DAILY BY MOUTH [Suspect]
     Indication: BREAST CANCER METASTATIC
     Dosage: 5MG DAILY BY MOUTH
     Route: 048
     Dates: start: 20100702, end: 20101006
  2. CISPLATIN [Suspect]
     Indication: BREAST CANCER METASTATIC
     Dosage: 42MG WKLY 3 OUT OF 4 WKS IV
     Route: 042
     Dates: start: 20100702, end: 20101001
  3. TAXOL [Suspect]
     Indication: BREAST CANCER METASTATIC
     Dosage: 133MG WKLY 3 OUT OF 4 WKS IV
     Route: 042
     Dates: start: 20100702, end: 20101001
  4. CYMBALTA [Concomitant]
  5. LISINOPRIL [Concomitant]
  6. GABAPENTIN [Concomitant]
  7. CATAPRES [Concomitant]
  8. OSCAL [Concomitant]
  9. OXYCODONE HCL AND ACETAMINOPHEN [Concomitant]
  10. TYLENOL#94 [Concomitant]
  11. COMPAZINE [Concomitant]
  12. METHYLDOPA [Concomitant]
  13. ZOFRAN [Concomitant]

REACTIONS (5)
  - ANAEMIA [None]
  - ASTHENIA [None]
  - NAUSEA [None]
  - PRESYNCOPE [None]
  - VOMITING [None]
